FAERS Safety Report 9974707 (Version 1)
Quarter: 2014Q1

REPORT INFORMATION
  Report Type: Report from Study
  Country: US (occurrence: US)
  Receive Date: 20140306
  Receipt Date: 20140306
  Transmission Date: 20141002
  Serious: No
  Sender: FDA-Public Use
  Company Number: US-ABBVIE-13P-163-1157725-00

PATIENT
  Age: 56 Year
  Sex: Female
  Weight: 148.91 kg

DRUGS (19)
  1. HUMIRA [Suspect]
     Indication: RHEUMATOID ARTHRITIS
     Route: 058
     Dates: start: 20130628
  2. METHOTREXATE [Concomitant]
     Indication: RHEUMATOID ARTHRITIS
     Dosage: 8 TABLETS
     Route: 048
     Dates: start: 2012
  3. SPIRIVA [Concomitant]
     Indication: ASTHMA
     Route: 055
  4. FENOFIBRATE [Concomitant]
     Indication: BLOOD CHOLESTEROL INCREASED
  5. VIT D [Concomitant]
     Indication: VITAMIN D DECREASED
  6. ROPINIROLE [Concomitant]
     Indication: RESTLESS LEGS SYNDROME
  7. METOPROLOL [Concomitant]
     Indication: HYPERTENSION
  8. ESCITALOPRAM [Concomitant]
     Indication: MOOD SWINGS
  9. SIMVASTATIN [Concomitant]
     Indication: BLOOD CHOLESTEROL INCREASED
  10. LANSOPRAZOLE [Concomitant]
     Indication: GASTROOESOPHAGEAL REFLUX DISEASE
  11. FOLIC ACID [Concomitant]
     Indication: PRODUCT USED FOR UNKNOWN INDICATION
  12. LEVOTHYROXINE [Concomitant]
     Indication: THYROIDECTOMY
  13. BUPROPION [Concomitant]
     Indication: MOOD SWINGS
  14. TOPAMAX [Concomitant]
     Indication: MIGRAINE
  15. MULTIVITAMIN [Concomitant]
     Indication: PRODUCT USED FOR UNKNOWN INDICATION
     Route: 048
  16. VITAMIN B12 [Concomitant]
     Indication: PRODUCT USED FOR UNKNOWN INDICATION
  17. CALCIUM [Concomitant]
     Indication: PRODUCT USED FOR UNKNOWN INDICATION
  18. CALCIUM D [Concomitant]
     Indication: PRODUCT USED FOR UNKNOWN INDICATION
  19. RELPAX [Concomitant]
     Indication: MIGRAINE

REACTIONS (2)
  - Ear infection [Recovered/Resolved]
  - Lymph gland infection [Recovered/Resolved]
